FAERS Safety Report 9464609 (Version 1)
Quarter: 2013Q3

REPORT INFORMATION
  Report Type: Spontaneous
  Country: CN (occurrence: CN)
  Receive Date: 20130819
  Receipt Date: 20130819
  Transmission Date: 20140515
  Serious: Yes (Hospitalization, Other)
  Sender: FDA-Public Use
  Company Number: CN-PFIZER INC-2013239209

PATIENT
  Age: 68 Year
  Sex: Male

DRUGS (7)
  1. LIPITOR [Suspect]
     Indication: HYPERTENSION
     Dosage: 10 MG, ONCE DAILY
     Route: 048
     Dates: start: 20110701, end: 20120401
  2. METOPROLOL [Concomitant]
     Dosage: UNK
     Dates: start: 20110701
  3. ASPIRIN ^BAYER^ [Concomitant]
     Dosage: UNK
     Dates: start: 20110701
  4. PERINDOPRIL [Concomitant]
     Dosage: UNK
     Dates: start: 20110701
  5. INDAPAMIDE [Concomitant]
     Dosage: UNK
     Dates: start: 20110701
  6. COLCHICINE [Concomitant]
     Dosage: UNK
     Dates: start: 20110701
  7. ALLOPURINOL [Concomitant]
     Dosage: UNK
     Dates: start: 20110701

REACTIONS (5)
  - Rhabdomyolysis [Recovering/Resolving]
  - Asthenia [Recovering/Resolving]
  - Dyspnoea exertional [Recovering/Resolving]
  - Alanine aminotransferase increased [Unknown]
  - Aspartate aminotransferase increased [Recovered/Resolved]
